FAERS Safety Report 20343308 (Version 2)
Quarter: 2022Q1

REPORT INFORMATION
  Report Type: Spontaneous
  Country: US (occurrence: US)
  Receive Date: 20220117
  Receipt Date: 20220225
  Transmission Date: 20220423
  Serious: Yes (Hospitalization)
  Sender: FDA-Public Use
  Company Number: US-BIOVITRUM-2022US00472

PATIENT
  Age: 0 Year
  Sex: Male
  Weight: 6.7 kg

DRUGS (6)
  1. SYNAGIS [Suspect]
     Active Substance: PALIVIZUMAB
     Indication: Antiviral prophylaxis
     Route: 030
     Dates: start: 20211203
  2. ALBUTEROL SULFATE [Concomitant]
     Active Substance: ALBUTEROL SULFATE
  3. CREON 3-9.5-15K CAPSULE DR [Concomitant]
  4. PROBIOTIC 10B CELL CAPSULE [Concomitant]
  5. VITAMINS [Concomitant]
     Active Substance: VITAMINS
  6. PULMOZYME 1 MG/ML SOLUTION [Concomitant]

REACTIONS (1)
  - Respiratory syncytial virus infection [Recovered/Resolved]

NARRATIVE: CASE EVENT DATE: 20211215
